FAERS Safety Report 18216734 (Version 1)
Quarter: 2020Q3

REPORT INFORMATION
  Report Type: Spontaneous
  Country: IT (occurrence: IT)
  Receive Date: 20200901
  Receipt Date: 20200901
  Transmission Date: 20201103
  Serious: Yes (Death, Other)
  Sender: FDA-Public Use
  Company Number: IT-PFIZER INC-2020332445

PATIENT
  Age: 73 Year
  Sex: Male

DRUGS (3)
  1. GEMCITABINE HYDROCHLORIDE. [Suspect]
     Active Substance: GEMCITABINE HYDROCHLORIDE
     Indication: PANCREATIC CARCINOMA METASTATIC
     Dosage: 1000 MG/M2, CYCLIC (ON DAY 1, EVERY 2 WEEKS FOR 12 CYCLES)
     Dates: start: 200708, end: 2007
  2. OXALIPLATIN. [Suspect]
     Active Substance: OXALIPLATIN
     Indication: PANCREATIC CARCINOMA METASTATIC
     Dosage: 100 MG/M2, CYCLIC (DAY 1 AND 2 EVERY 2 WEEKS FOR 12 CYCLES)
     Dates: start: 200708
  3. GEMCITABINE HYDROCHLORIDE. [Suspect]
     Active Substance: GEMCITABINE HYDROCHLORIDE
     Dosage: 1000 MG/M2, EVERY 3 WEEKS (SINGLE AGENT)
     Dates: start: 2007, end: 2007

REACTIONS (2)
  - Thrombocytopenia [Unknown]
  - Neurotoxicity [Unknown]

NARRATIVE: CASE EVENT DATE: 2007
